FAERS Safety Report 7731205-X (Version None)
Quarter: 2011Q3

REPORT INFORMATION
  Report Type: 
  Country: None (occurrence: None)
  Receive Date: 20110906
  Receipt Date: 20110829
  Transmission Date: 20111222
  Serious: Yes (Hospitalization)
  Sender: FDA-Public Use
  Company Number: BR-MEDIMMUNE-MEDI-0013521

PATIENT
  Sex: Female
  Weight: 7.45 kg

DRUGS (2)
  1. SYNAGIS [Suspect]
  2. SYNAGIS [Suspect]
     Indication: BRONCHOPULMONARY DYSPLASIA
     Route: 030
     Dates: start: 20100827, end: 20100827

REACTIONS (5)
  - SNORING [None]
  - FATIGUE [None]
  - PRODUCTIVE COUGH [None]
  - CYANOSIS [None]
  - PNEUMONIA [None]
